FAERS Safety Report 14332593 (Version 2)
Quarter: 2018Q2

REPORT INFORMATION
  Report Type: Spontaneous
  Country: CZ (occurrence: CZ)
  Receive Date: 20171228
  Receipt Date: 20180409
  Transmission Date: 20180711
  Serious: Yes (Other)
  Sender: FDA-Public Use
  Company Number: CZ-TAKEDA-2017TEU005578

PATIENT
  Age: 78 Year
  Sex: Female

DRUGS (6)
  1. SITAGLIPTIN [Concomitant]
     Active Substance: SITAGLIPTIN
     Indication: TYPE 2 DIABETES MELLITUS
     Dosage: 100 MG, UNK
     Route: 048
     Dates: start: 201209
  2. JANUVIA [Concomitant]
     Active Substance: SITAGLIPTIN PHOSPHATE
     Indication: TYPE 2 DIABETES MELLITUS
     Dosage: 100 MG, UNK
  3. PIOGLITAZONE. [Suspect]
     Active Substance: PIOGLITAZONE
     Indication: TYPE 2 DIABETES MELLITUS
     Dosage: 15 MG, QD
     Route: 048
     Dates: start: 201611, end: 201708
  4. INSULIN [Concomitant]
     Active Substance: INSULIN NOS
     Dosage: UNK
  5. METFORMIN [Concomitant]
     Active Substance: METFORMIN HYDROCHLORIDE
     Indication: GASTROINTESTINAL DISORDER
     Dosage: UNK
  6. GLIMEPIRIDE. [Concomitant]
     Active Substance: GLIMEPIRIDE
     Indication: TYPE 2 DIABETES MELLITUS
     Dosage: 6 MG, UNK
     Route: 048
     Dates: start: 201202

REACTIONS (3)
  - Dyspnoea [Unknown]
  - Weight increased [Unknown]
  - Peripheral swelling [Unknown]
